FAERS Safety Report 4435114-3 (Version None)
Quarter: 2004Q3

REPORT INFORMATION
  Report Type: 
  Country: None (occurrence: None)
  Receive Date: 20040826
  Receipt Date: 20040826
  Transmission Date: 20050211
  Serious: Yes (Hospitalization)
  Sender: FDA-Public Use
  Company Number: None

PATIENT
  Age: 60 Year
  Sex: Female
  Weight: 63.9572 kg

DRUGS (10)
  1. ELLENCE [Suspect]
     Indication: BREAST CANCER STAGE II
     Dosage: 201 MG ONCE INTRAVENOUS
     Route: 042
     Dates: start: 20040817, end: 20040817
  2. CYCLOPHOSPHAMIDE [Concomitant]
  3. ONDANSENTRON [Concomitant]
  4. DEXAMETHASONE [Concomitant]
  5. PROCRIT [Concomitant]
  6. HYDROCHLOROTHIAZIDE [Concomitant]
  7. METHADONE HCL [Concomitant]
  8. BENAZEPRIL HCL [Concomitant]
  9. PAROXETINE HCL [Concomitant]
  10. CHLORDIAZEPOXIDE [Concomitant]

REACTIONS (9)
  - ABDOMINAL PAIN [None]
  - ANGIONEUROTIC OEDEMA [None]
  - CARDIAC FAILURE CONGESTIVE [None]
  - CARDIOTOXICITY [None]
  - CHEST PAIN [None]
  - HEADACHE [None]
  - HYPERTENSION [None]
  - NAUSEA [None]
  - VOMITING [None]
